FAERS Safety Report 8889599 (Version 1)
Quarter: 2012Q4

REPORT INFORMATION
  Report Type: Spontaneous
  Country: US (occurrence: None)
  Receive Date: 20121105
  Receipt Date: 20121105
  Transmission Date: 20130627
  Serious: Yes (Other)
  Sender: FDA-Public Use
  Company Number: None

PATIENT
  Age: 91 Year
  Sex: Male
  Weight: 62.6 kg

DRUGS (1)
  1. ZYTIGA [Suspect]
     Indication: PROSTATE CANCER
     Dosage: 4 per day mouth
     Route: 048
     Dates: start: 20120520, end: 20121017

REACTIONS (3)
  - Paraesthesia [None]
  - Arthralgia [None]
  - Pain in extremity [None]
